FAERS Safety Report 14628639 (Version 1)
Quarter: 2018Q1

REPORT INFORMATION
  Report Type: Spontaneous
  Country: US (occurrence: US)
  Receive Date: 20180313
  Receipt Date: 20180313
  Transmission Date: 20180509
  Serious: Yes (Hospitalization)
  Sender: FDA-Public Use
  Company Number: US-AXELLIA-001460

PATIENT
  Age: 51 Year
  Sex: Male
  Weight: 225 kg

DRUGS (5)
  1. HEPARIN [Interacting]
     Active Substance: HEPARIN SODIUM
     Indication: ANTICOAGULANT THERAPY
     Route: 042
  2. MEROPENEM. [Concomitant]
     Active Substance: MEROPENEM
     Indication: ABDOMINAL INFECTION
     Dosage: INFUSED OVER 3 HOURS
     Route: 042
  3. DAPTOMYCIN. [Suspect]
     Active Substance: DAPTOMYCIN
     Indication: ENTEROCOCCAL BACTERAEMIA
     Dosage: 6 MG/KG
     Route: 042
  4. PHYTOMENADIONE [Suspect]
     Active Substance: PHYTONADIONE
     Indication: ANTICOAGULANT THERAPY
     Route: 042
  5. WARFARIN [Interacting]
     Active Substance: WARFARIN
     Indication: ANTICOAGULANT THERAPY
     Route: 048

REACTIONS (3)
  - Prothrombin time prolonged [Unknown]
  - Drug interaction [Unknown]
  - International normalised ratio increased [Unknown]
